FAERS Safety Report 13049515 (Version 2)
Quarter: 2017Q1

REPORT INFORMATION
  Report Type: Spontaneous
  Country: PE (occurrence: PE)
  Receive Date: 20161221
  Receipt Date: 20170209
  Transmission Date: 20170428
  Serious: Yes (Death, Other)
  Sender: FDA-Public Use
  Company Number: PE-AMGEN-PERSP2016180467

PATIENT
  Age: 74 Year
  Sex: Female

DRUGS (1)
  1. PROLIA [Suspect]
     Active Substance: DENOSUMAB
     Indication: OSTEOPOROSIS
     Dosage: 60 MG/ML, CYC
     Route: 058
     Dates: start: 20160716

REACTIONS (1)
  - Infarction [Fatal]

NARRATIVE: CASE EVENT DATE: 20160914
